FAERS Safety Report 7620428-6 (Version None)
Quarter: 2011Q3

REPORT INFORMATION
  Report Type: 
  Country: None (occurrence: None)
  Receive Date: 20110719
  Receipt Date: 20110711
  Transmission Date: 20111222
  Serious: Yes (Other)
  Sender: FDA-Public Use
  Company Number: CA-JNJFOC-20110507852

PATIENT
  Age: 40 Year
  Sex: Female

DRUGS (7)
  1. ETHINYL ESTRADIOL [Suspect]
     Indication: EPILEPSY
     Dosage: ONCE DAILY
     Route: 065
     Dates: start: 20110301
  2. TOPIRAMATE [Suspect]
     Indication: EPILEPSY
     Route: 048
     Dates: start: 19960101
  3. CITALOPRAM HYDROBROMIDE [Suspect]
     Indication: PRODUCT USED FOR UNKNOWN INDICATION
     Route: 065
     Dates: start: 20030101
  4. ETHINYL ESTRADIOL [Suspect]
     Route: 065
  5. KEPPRA [Suspect]
     Indication: EPILEPSY
     Dosage: 1000 MG (500X2) TWICE DAILY
     Route: 065
     Dates: start: 20050101
  6. LEVONORGESTREL [Suspect]
     Indication: EPILEPSY
     Dosage: ONCE DAILY
     Route: 065
     Dates: start: 20110301
  7. TOPAMAX [Suspect]
     Indication: EPILEPSY
     Route: 048

REACTIONS (4)
  - VAGINAL DISCHARGE [None]
  - DIZZINESS [None]
  - PETIT MAL EPILEPSY [None]
  - FEELING HOT [None]
